FAERS Safety Report 10080647 (Version 4)
Quarter: 2019Q2

REPORT INFORMATION
  Report Type: Spontaneous
  Country: JP (occurrence: JP)
  Receive Date: 20140416
  Receipt Date: 20190520
  Transmission Date: 20190711
  Serious: Yes (Hospitalization, Other)
  Sender: FDA-Public Use
  Company Number: JP-009507513-1404JPN008379

PATIENT
  Age: 74 Year
  Sex: Male

DRUGS (6)
  1. CONTOMIN [Suspect]
     Active Substance: CHLORPROMAZINE
     Dosage: DAILY DOSE UNKNOWN
     Route: 048
  2. GLIMICRON [Suspect]
     Active Substance: GLICLAZIDE
     Dosage: DAILY DOSE UNKNOWN
     Route: 048
  3. PERPHENAZINE. [Suspect]
     Active Substance: PERPHENAZINE
     Dosage: DAILY DOSE UNKNOWN
     Route: 048
  4. JANUVIA [Suspect]
     Active Substance: SITAGLIPTIN PHOSPHATE
     Indication: DIABETES MELLITUS
     Dosage: 50 MG, QD
     Route: 048
     Dates: start: 20140311, end: 20140328
  5. PARKIN [Suspect]
     Active Substance: ETHOPROPAZINE
     Dosage: DAILY DOSE UNKNOWN
     Route: 048
  6. SERENACE [Suspect]
     Active Substance: HALOPERIDOL
     Dosage: DAILY DOSE UNKNOWN
     Route: 048

REACTIONS (1)
  - Rhabdomyolysis [Recovering/Resolving]

NARRATIVE: CASE EVENT DATE: 20140327
